FAERS Safety Report 10253511 (Version 1)
Quarter: 2014Q2

REPORT INFORMATION
  Report Type: Report from Study
  Country: US (occurrence: US)
  Receive Date: 20140623
  Receipt Date: 20140623
  Transmission Date: 20141212
  Serious: Yes (Hospitalization, Other)
  Sender: FDA-Public Use
  Company Number: US-TEVA-488865USA

PATIENT
  Age: 62 Year
  Sex: Female
  Weight: 61.3 kg

DRUGS (2)
  1. DAUNORUBICIN [Suspect]
     Indication: ACUTE MYELOID LEUKAEMIA
     Dates: start: 20140531, end: 20140603
  2. CYTARABINE [Suspect]
     Indication: ACUTE MYELOID LEUKAEMIA
     Dates: start: 20140531, end: 20140607

REACTIONS (2)
  - Hypotension [Recovering/Resolving]
  - Febrile neutropenia [Recovering/Resolving]
